FAERS Safety Report 21132358 (Version 2)
Quarter: 2022Q3

REPORT INFORMATION
  Report Type: Spontaneous
  Country: FR (occurrence: FR)
  Receive Date: 20220726
  Receipt Date: 20220914
  Transmission Date: 20221027
  Serious: Yes (Death)
  Sender: FDA-Public Use
  Company Number: None

PATIENT
  Age: 87 Year
  Sex: Male
  Weight: 86 kg

DRUGS (8)
  1. AMLODIPINE [Suspect]
     Active Substance: AMLODIPINE BESYLATE
     Indication: Hypertension
     Dosage: UNIT DOSE: 5 MG, FREQUENCY TIME : 1 DAY, THERAPY START DATE : ASKU
     Dates: end: 20210331
  2. POLYETHYLENE GLYCOLS [Suspect]
     Active Substance: POLYETHYLENE GLYCOLS
     Indication: Constipation
     Dosage: MACROGOL (STEARATE DE), UNIT DOSE: 1 DF, FREQUENCY TIME : 1 DAY, THERAPY START DATE : ASKU
     Dates: end: 20210331
  3. TAMSULOSIN [Suspect]
     Active Substance: TAMSULOSIN
     Indication: Prostatic adenoma
     Dosage: UNIT DOSE: 0.4 MG, FREQUENCY TIME : 1 DAY, THERAPY START DATE : ASKU
     Dates: end: 20210331
  4. PANTOPRAZOLE [Suspect]
     Active Substance: PANTOPRAZOLE
     Indication: Product used for unknown indication
     Dosage: UNIT DOSE: 40 MG, FREQUENCY TIME :1 DAY, THERAPY START DATE : ASKU
     Dates: end: 20210331
  5. IRBESARTAN [Suspect]
     Active Substance: IRBESARTAN
     Indication: Hypertension
     Dosage: UNIT DOSE: 300 MG, FREQUENCY TIME : 1 DAY, THERAPY START DATE : ASKU
     Dates: end: 20210331
  6. XARELTO [Suspect]
     Active Substance: RIVAROXABAN
     Indication: Thrombosis prophylaxis
     Dosage: XARELTO 15 MG FILM-COATED TABLETS, UNIT DOSE: 15 MG, FREQUENCY TIME : 1 DAY, THERAPY START DATE : AS
     Dates: end: 20210331
  7. OXAZEPAM [Suspect]
     Active Substance: OXAZEPAM
     Indication: Alcohol withdrawal syndrome
     Dosage: UNIT DOSE: 50 MG, FREQUENCY TIME : 1 DAY, THERAPY START DATE : ASKU
     Dates: end: 20210331
  8. DEXERYL [Concomitant]
     Indication: Dry skin
     Dosage: DEXERYL, CREAM IN A TUBE, UNIT DOSE:  1 DF, FREQUENCY TIME : 1 DAY, DURATION : 1 DAY
     Dates: start: 20210331, end: 20210331

REACTIONS (1)
  - Cardio-respiratory arrest [Fatal]

NARRATIVE: CASE EVENT DATE: 20210331
